FAERS Safety Report 8274523-1 (Version None)
Quarter: 2012Q2

REPORT INFORMATION
  Report Type: 
  Country: None (occurrence: None)
  Receive Date: 20120411
  Receipt Date: 20120328
  Transmission Date: 20120825
  Serious: Yes (Other)
  Sender: FDA-Public Use
  Company Number: ES-WATSON-2012-04202

PATIENT
  Age: 2 Year
  Sex: Male

DRUGS (2)
  1. PREDNISONE TAB [Suspect]
     Indication: NEPHROTIC SYNDROME
     Dosage: 40MG ON ALTERNATE DAYS
     Route: 065
  2. CYCLOSPORINE [Suspect]
     Indication: NEPHROTIC SYNDROME
     Dosage: UNK
     Route: 065

REACTIONS (4)
  - EPISTAXIS [None]
  - MUCOSAL INFLAMMATION [None]
  - CUSHING'S SYNDROME [None]
  - CANDIDIASIS [None]
